FAERS Safety Report 16430585 (Version 1)
Quarter: 2019Q2

REPORT INFORMATION
  Report Type: Spontaneous
  Country: AT (occurrence: AT)
  Receive Date: 20190614
  Receipt Date: 20190614
  Transmission Date: 20190711
  Serious: Yes (Disabling, Other)
  Sender: FDA-Public Use
  Company Number: AT-ACCORD-132855

PATIENT
  Age: 25 Year
  Sex: Male
  Weight: 74 kg

DRUGS (1)
  1. ESCITALOPRAM [Suspect]
     Active Substance: ESCITALOPRAM OXALATE
     Indication: PRODUCT USED FOR UNKNOWN INDICATION
     Dosage: ALSO TAKEN 10 MG FROM 17-DEC-2018 TO 20-DEC-2018(DOSE INCREASED)
     Dates: start: 20181221, end: 20181223

REACTIONS (22)
  - Apathy [Not Recovered/Not Resolved]
  - Feeling abnormal [Recovering/Resolving]
  - Erectile dysfunction [Not Recovered/Not Resolved]
  - Confusional state [Unknown]
  - Aphasia [Unknown]
  - Fatigue [Unknown]
  - Emotional poverty [Not Recovered/Not Resolved]
  - Malaise [Recovered/Resolved with Sequelae]
  - Personality change [Unknown]
  - Orgasmic sensation decreased [Not Recovered/Not Resolved]
  - Disturbance in attention [Not Recovered/Not Resolved]
  - Depressed level of consciousness [Not Recovered/Not Resolved]
  - Loss of libido [Recovering/Resolving]
  - Illusion [Not Recovered/Not Resolved]
  - Poisoning [Unknown]
  - Tunnel vision [Not Recovered/Not Resolved]
  - Memory impairment [Not Recovered/Not Resolved]
  - Tremor [Unknown]
  - Bradyphrenia [Not Recovered/Not Resolved]
  - Hypoaesthesia [Not Recovered/Not Resolved]
  - Hyperhidrosis [Unknown]
  - Orgasm abnormal [Not Recovered/Not Resolved]

NARRATIVE: CASE EVENT DATE: 201812
